FAERS Safety Report 6633015-3 (Version None)
Quarter: 2010Q1

REPORT INFORMATION
  Report Type: 
  Country: None (occurrence: None)
  Receive Date: 20100312
  Receipt Date: 20100302
  Transmission Date: 20100710
  Serious: Yes (Hospitalization)
  Sender: FDA-Public Use
  Company Number: FR-SANOFI-AVENTIS-2009SA011556

PATIENT
  Age: 76 Year
  Sex: Male
  Weight: 74 kg

DRUGS (21)
  1. BLINDED THERAPY [Suspect]
     Indication: PROSTATE CANCER METASTATIC
     Route: 042
     Dates: start: 20091217, end: 20091217
  2. BLINDED THERAPY [Suspect]
     Route: 042
     Dates: start: 20091126, end: 20091126
  3. DOCETAXEL [Suspect]
     Indication: PROSTATE CANCER METASTATIC
     Route: 042
     Dates: start: 20091217, end: 20091217
  4. DOCETAXEL [Suspect]
     Route: 042
     Dates: start: 20091126, end: 20091126
  5. PREDNISONE [Suspect]
     Indication: PROSTATE CANCER METASTATIC
     Dates: start: 20091126, end: 20091217
  6. LEUPROLIDE ACETATE [Concomitant]
     Dates: start: 20090706
  7. COVERSYL /FRA/ [Concomitant]
     Dates: start: 20090425
  8. CRESTOR [Concomitant]
     Dates: start: 20091118
  9. ESOMEPRAZOLE [Concomitant]
     Dates: start: 20091123
  10. PLAVIX [Concomitant]
     Dates: start: 20090401
  11. CORONARY VASODILATORS [Concomitant]
     Dates: start: 20091106
  12. CACIT D3 [Concomitant]
     Dates: start: 20091106
  13. DOMPERIDONE [Concomitant]
     Dates: start: 20091123, end: 20091207
  14. GLUTAMINE [Concomitant]
     Dates: start: 20091123, end: 20091207
  15. DEXAMETHASONE [Concomitant]
     Dates: start: 20091125, end: 20091127
  16. OROKEN [Concomitant]
     Dates: start: 20091204, end: 20091208
  17. OFLOCET [Concomitant]
     Dates: start: 20091204, end: 20091208
  18. TRIFLUCAN [Concomitant]
     Dates: start: 20091130, end: 20091207
  19. MYCOSTATIN [Concomitant]
     Dates: start: 20091130, end: 20091207
  20. KABIVEN [Concomitant]
     Dates: start: 20091207, end: 20091208
  21. KYTRIL [Concomitant]
     Dates: start: 20091126, end: 20091126

REACTIONS (1)
  - FAECALITH [None]
